FAERS Safety Report 11046507 (Version 1)
Quarter: 2015Q2

REPORT INFORMATION
  Report Type: Spontaneous
  Country: US (occurrence: US)
  Receive Date: 20150420
  Receipt Date: 20150420
  Transmission Date: 20150821
  Serious: No
  Sender: FDA-Public Use
  Company Number: US-TEVA-497447USA

PATIENT
  Age: 67 Year
  Sex: Female

DRUGS (1)
  1. NIACIN EXTENDED RELEASE [Suspect]
     Active Substance: NIACIN
     Dates: start: 201312

REACTIONS (5)
  - Flushing [Unknown]
  - Pruritus [Unknown]
  - Skin warm [Unknown]
  - Erythema [Unknown]
  - Urticaria [Unknown]

NARRATIVE: CASE EVENT DATE: 20140617
